FAERS Safety Report 7871210-6 (Version None)
Quarter: 2011Q4

REPORT INFORMATION
  Report Type: 
  Country: None (occurrence: None)
  Receive Date: 20111029
  Receipt Date: 20110228
  Transmission Date: 20120403
  Serious: Yes (Hospitalization)
  Sender: FDA-Public Use
  Company Number: US-AMGEN-USASP2011011397

PATIENT
  Age: 69 Year
  Sex: Female

DRUGS (3)
  1. ENBREL [Suspect]
     Indication: PSORIATIC ARTHROPATHY
     Dates: start: 20060601
  2. METHOTREXATE [Concomitant]
     Dosage: 1 MG, QWK
     Dates: start: 20060601
  3. ENBREL [Suspect]
     Indication: PSORIASIS

REACTIONS (5)
  - PSORIATIC ARTHROPATHY [None]
  - BRONCHITIS [None]
  - PSORIASIS [None]
  - PNEUMONIA [None]
  - SINUSITIS [None]
